FAERS Safety Report 12908525 (Version 1)
Quarter: 2016Q4

REPORT INFORMATION
  Report Type: Spontaneous
  Country: MX (occurrence: MX)
  Receive Date: 20161103
  Receipt Date: 20161103
  Transmission Date: 20170207
  Serious: Yes (Other)
  Sender: FDA-Public Use
  Company Number: MX-PFIZER INC-2016506471

PATIENT
  Age: 52 Year
  Sex: Male

DRUGS (6)
  1. LANOXIN [Concomitant]
     Active Substance: DIGOXIN
     Dosage: UNK
     Dates: start: 1986
  2. LIPITOR [Concomitant]
     Active Substance: ATORVASTATIN CALCIUM
     Dosage: UNK
  3. BEZAFIBRATE [Concomitant]
     Active Substance: BEZAFIBRATE
     Dosage: UNK
  4. ALMETEC-CO [Concomitant]
     Dosage: UNK
     Dates: start: 1991
  5. CORDARONE [Suspect]
     Active Substance: AMIODARONE HYDROCHLORIDE
     Indication: CARDIOMYOPATHY
     Dosage: UNK
     Route: 048
     Dates: start: 1991
  6. SELOKEN [Concomitant]
     Active Substance: METOPROLOL
     Dosage: UNK
     Dates: start: 1991

REACTIONS (4)
  - Hypertension [Recovered/Resolved]
  - Diabetes mellitus [Recovered/Resolved]
  - Myopia [Recovered/Resolved]
  - Benign prostatic hyperplasia [Recovered/Resolved]

NARRATIVE: CASE EVENT DATE: 1991
